FAERS Safety Report 20728923 (Version 2)
Quarter: 2022Q2

REPORT INFORMATION
  Report Type: Spontaneous
  Country: US (occurrence: US)
  Receive Date: 20220420
  Receipt Date: 20220429
  Transmission Date: 20220721
  Serious: No
  Sender: FDA-Public Use
  Company Number: US-UNITED THERAPEUTICS-UNT-2022-008364

PATIENT
  Sex: Male

DRUGS (3)
  1. REMODULIN [Suspect]
     Active Substance: TREPROSTINIL
     Indication: Pulmonary arterial hypertension
     Dosage: UNK, CONTINUING
     Route: 058
     Dates: start: 20200326
  2. REMODULIN [Suspect]
     Active Substance: TREPROSTINIL
     Dosage: 0.0289 ?G/KG, CONTINUING (0.042 ML/HR)
     Route: 058
  3. REMODULIN [Suspect]
     Active Substance: TREPROSTINIL
     Dosage: 0.03050 ?G/KG, CONTINUING (0.044 ML/HR)
     Route: 058

REACTIONS (2)
  - Diarrhoea [Recovering/Resolving]
  - Fatigue [Unknown]
